FAERS Safety Report 14108332 (Version 1)
Quarter: 2017Q4

REPORT INFORMATION
  Report Type: Spontaneous
  Country: EE (occurrence: EE)
  Receive Date: 20171019
  Receipt Date: 20171019
  Transmission Date: 20180321
  Serious: Yes (Other)
  Sender: FDA-Public Use
  Company Number: EE-TEVA-817327USA

PATIENT
  Sex: Female

DRUGS (1)
  1. ESCAPELLE [Suspect]
     Active Substance: LEVONORGESTREL
     Indication: POST COITAL CONTRACEPTION
     Route: 065
     Dates: start: 20171005, end: 20171005

REACTIONS (6)
  - Eye swelling [Unknown]
  - Dizziness [Unknown]
  - Headache [Unknown]
  - Depressed mood [Unknown]
  - Wound [Unknown]
  - Frustration tolerance decreased [Unknown]
